FAERS Safety Report 18464171 (Version 1)
Quarter: 2020Q4

REPORT INFORMATION
  Report Type: Report from Study
  Country: FR (occurrence: FR)
  Receive Date: 20201104
  Receipt Date: 20201104
  Transmission Date: 20210114
  Serious: Yes (Death, Hospitalization, Other)
  Sender: FDA-Public Use
  Company Number: FR-JAZZ-2019-FR-014820

PATIENT

DRUGS (1)
  1. DEFITELIO [Suspect]
     Active Substance: DEFIBROTIDE SODIUM
     Indication: VENOOCCLUSIVE LIVER DISEASE
     Dosage: 26 MILLIGRAM/KILOGRAM/DAY
     Route: 042
     Dates: start: 20150310, end: 20150330

REACTIONS (8)
  - Aspergillus infection [Fatal]
  - Pneumocystis jirovecii pneumonia [Fatal]
  - Acute graft versus host disease [Unknown]
  - Liver disorder [Unknown]
  - Septic shock [Fatal]
  - Chronic graft versus host disease [Unknown]
  - Intentional product use issue [Unknown]
  - Multiple organ dysfunction syndrome [Fatal]

NARRATIVE: CASE EVENT DATE: 20150310
